FAERS Safety Report 5947621-2 (Version None)
Quarter: 2008Q4

REPORT INFORMATION
  Report Type: 
  Country: None (occurrence: None)
  Receive Date: 20081107
  Receipt Date: 20081103
  Transmission Date: 20090506
  Serious: Yes (Death)
  Sender: FDA-Public Use
  Company Number: SPV1-2008-02387

PATIENT
  Age: 7 Year
  Sex: Male

DRUGS (2)
  1. VYVANSE [Suspect]
     Indication: ATTENTION DEFICIT/HYPERACTIVITY DISORDER
     Dosage: 30 MG, 1X/DAY:QD IN THE MORNING, ORAL
     Route: 048
     Dates: start: 20070101, end: 20081019
  2. RITALIN [Concomitant]

REACTIONS (2)
  - CARDIAC DISORDER [None]
  - SUDDEN DEATH [None]
